FAERS Safety Report 6502673-6 (Version None)
Quarter: 2009Q4

REPORT INFORMATION
  Report Type: 
  Country: None (occurrence: None)
  Receive Date: 20091127
  Receipt Date: 20090219
  Transmission Date: 20100525
  Serious: Yes (Other)
  Sender: FDA-Public Use
  Company Number: WAES 0902USA03922

PATIENT
  Age: 60 Year
  Sex: Female

DRUGS (12)
  1. FOSAMAX [Suspect]
     Indication: OSTEOPOROSIS
     Dosage: 70 MG/PO
     Route: 048
     Dates: start: 20060525, end: 20070111
  2. FOSAMAX PLUS D [Suspect]
     Indication: OSTEOPOROSIS
     Dosage: PO
     Route: 048
     Dates: start: 20070419, end: 20070926
  3. ACTOS [Concomitant]
  4. DITROPAN [Concomitant]
  5. LEVOTHROID [Concomitant]
  6. NABUMETONE [Concomitant]
  7. GLIPIZIDE [Concomitant]
  8. IMIPRAMINE HYDROCHLORIDE [Concomitant]
  9. LOVASTATIN [Concomitant]
  10. METFORMIN HCL [Concomitant]
  11. METOPROLOL TARTRATE [Concomitant]
  12. SIMVASTATIN [Concomitant]

REACTIONS (6)
  - DEPRESSION [None]
  - HYPERTENSION [None]
  - ILL-DEFINED DISORDER [None]
  - OSTEONECROSIS [None]
  - RENAL IMPAIRMENT [None]
  - TYPE 1 DIABETES MELLITUS [None]
